FAERS Safety Report 15930936 (Version 3)
Quarter: 2019Q1

REPORT INFORMATION
  Report Type: Spontaneous
  Country: US (occurrence: US)
  Receive Date: 20190207
  Receipt Date: 20190301
  Transmission Date: 20190417
  Serious: Yes (Other)
  Sender: FDA-Public Use
  Company Number: US-BAUSCH-BL-2019-003320

PATIENT
  Age: 51 Year
  Sex: Male
  Weight: 120.31 kg

DRUGS (1)
  1. SILIQ [Suspect]
     Active Substance: BRODALUMAB
     Indication: PSORIASIS
     Dosage: LOADING DOSE: ONCE A WEEK IN WEEKS 0, 1, 2, FOLLOWED BY MAINTENANCE DOSE OF ONCE EVERY 2 WEEKS
     Route: 065
     Dates: start: 201810, end: 201812

REACTIONS (3)
  - Anger [Recovered/Resolved]
  - Depression [Recovered/Resolved]
  - Suicidal ideation [Recovered/Resolved]

NARRATIVE: CASE EVENT DATE: 201810
